FAERS Safety Report 9669202 (Version 1)
Quarter: 2013Q4

REPORT INFORMATION
  Report Type: Spontaneous
  Country: FR (occurrence: FR)
  Receive Date: 20131105
  Receipt Date: 20131105
  Transmission Date: 20140711
  Serious: Yes (Life-Threatening)
  Sender: FDA-Public Use
  Company Number: FR-SA-2013SA110303

PATIENT
  Age: 76 Year
  Sex: Female

DRUGS (2)
  1. PYOSTACINE [Suspect]
     Indication: WOUND INFECTION
     Route: 048
     Dates: start: 20130930, end: 20130930
  2. RIFADINE [Suspect]
     Indication: WOUND INFECTION
     Route: 048
     Dates: start: 20130930, end: 20130930

REACTIONS (3)
  - Angioedema [Recovered/Resolved]
  - Blood pressure decreased [Recovered/Resolved]
  - Respiratory gas exchange disorder [Recovered/Resolved]
